FAERS Safety Report 6286946-0 (Version None)
Quarter: 2009Q3

REPORT INFORMATION
  Report Type: 
  Country: None (occurrence: None)
  Receive Date: 20090716
  Receipt Date: 20090504
  Transmission Date: 20100115
  Serious: No
  Sender: FDA-Public Use
  Company Number: 2009BI013428

PATIENT
  Sex: Male

DRUGS (2)
  1. AVONEX [Suspect]
     Indication: MULTIPLE SCLEROSIS
     Dosage: 30 UG;QW;IM
     Dates: end: 20000101
  2. BETASERONE [Concomitant]

REACTIONS (3)
  - DYSGRAPHIA [None]
  - HANGOVER [None]
  - INFLUENZA LIKE ILLNESS [None]
